FAERS Safety Report 20670616 (Version 1)
Quarter: 2022Q2

REPORT INFORMATION
  Report Type: Spontaneous
  Country: IT (occurrence: IT)
  Receive Date: 20220404
  Receipt Date: 20220404
  Transmission Date: 20220721
  Serious: Yes (Hospitalization, Other)
  Sender: FDA-Public Use
  Company Number: IT-PFM-2021-09079

PATIENT
  Age: 22 Year
  Sex: Female

DRUGS (5)
  1. AZITHROMYCIN [Suspect]
     Active Substance: AZITHROMYCIN
     Indication: Eye pain
     Dosage: 250 MILLIGRAM, BID 250 MG, BID (2/DAY)
     Route: 065
  2. TETRACYCLINE [Concomitant]
     Active Substance: TETRACYCLINE
     Indication: Photophobia
     Dosage: UNK
  3. TETRACYCLINE [Concomitant]
     Active Substance: TETRACYCLINE
     Indication: Eye pain
     Dosage: UNK UNK, TID
     Route: 061
  4. SULFAMETHYLTHIAZOLE [Concomitant]
     Indication: Photophobia
     Dosage: UNK
  5. SULFAMETHYLTHIAZOLE [Concomitant]
     Indication: Eye pain
     Dosage: UNK UNK, TID

REACTIONS (5)
  - Condition aggravated [Unknown]
  - Drug ineffective [Unknown]
  - Product use in unapproved indication [Unknown]
  - Product use issue [Unknown]
  - Off label use [Unknown]
